FAERS Safety Report 7533528-6 (Version None)
Quarter: 2011Q2

REPORT INFORMATION
  Report Type: 
  Country: None (occurrence: None)
  Receive Date: 20110608
  Receipt Date: 20060116
  Transmission Date: 20111010
  Serious: Yes (Hospitalization, Other)
  Sender: FDA-Public Use
  Company Number: PHMT2006CA00531

PATIENT
  Sex: Male

DRUGS (1)
  1. CLOZAPINE [Suspect]
     Dates: start: 20050912, end: 20051227

REACTIONS (3)
  - VIRAL INFECTION [None]
  - INFLUENZA LIKE ILLNESS [None]
  - CARDIAC DISORDER [None]
